FAERS Safety Report 6541524-0 (Version None)
Quarter: 2010Q1

REPORT INFORMATION
  Report Type: 
  Country: None (occurrence: None)
  Receive Date: 20100119
  Receipt Date: 20100108
  Transmission Date: 20100710
  Serious: Yes (Hospitalization)
  Sender: FDA-Public Use
  Company Number: GB-RANBAXY-2010RR-30402

PATIENT

DRUGS (1)
  1. PARACETAMOL [Suspect]
     Indication: DRUG USE FOR UNKNOWN INDICATION
     Dosage: 20 G, UNK
     Route: 048

REACTIONS (3)
  - LIVER INJURY [None]
  - OVERDOSE [None]
  - SUICIDE ATTEMPT [None]
